FAERS Safety Report 7892553-6 (Version None)
Quarter: 2011Q4

REPORT INFORMATION
  Report Type: 
  Country: None (occurrence: None)
  Receive Date: 20111104
  Receipt Date: 20111024
  Transmission Date: 20120403
  Serious: Yes (Death, Other)
  Sender: FDA-Public Use
  Company Number: US-RANBAXY-2011RR-43742

PATIENT
  Sex: Female

DRUGS (6)
  1. GABAPENTIN [Suspect]
     Dosage: 300 MG, 3 IN 1 DAY
     Route: 065
  2. GABAPENTIN [Suspect]
     Dosage: 400 MG, UNK
     Route: 065
  3. GABAPENTIN [Suspect]
     Dosage: 800 MG, UNK
     Route: 065
  4. GABAPENTIN [Suspect]
     Dosage: 600 MG, UNK
     Route: 065
  5. GABAPENTIN [Suspect]
     Indication: PAIN IN EXTREMITY
     Dosage: 100 MG, UNK
     Route: 065
  6. FENTANYL [Concomitant]
     Indication: PAIN
     Route: 065

REACTIONS (3)
  - INTENTIONAL OVERDOSE [None]
  - TOXICITY TO VARIOUS AGENTS [None]
  - COMPLETED SUICIDE [None]
